FAERS Safety Report 7957747-X (Version None)
Quarter: 2011Q4

REPORT INFORMATION
  Report Type: 
  Country: None (occurrence: None)
  Receive Date: 20111205
  Receipt Date: 20111205
  Transmission Date: 20120403
  Serious: Yes (Hospitalization)
  Sender: FDA-Public Use
  Company Number: PHHO2010CN16080

PATIENT
  Sex: Male
  Weight: 49 kg

DRUGS (2)
  1. AFINITOR [Suspect]
     Indication: GASTRIC CANCER
     Dosage: 10 MG, QD
     Route: 048
     Dates: start: 20100818, end: 20100922
  2. TS 1 [Concomitant]
     Indication: GASTRIC CANCER

REACTIONS (8)
  - ABDOMINAL PAIN [None]
  - ASCITES [None]
  - INTESTINAL OBSTRUCTION [None]
  - DECREASED APPETITE [None]
  - NEOPLASM MALIGNANT [None]
  - DRUG INEFFECTIVE [None]
  - ABDOMINAL DISTENSION [None]
  - PLEURAL EFFUSION [None]
